FAERS Safety Report 17791359 (Version 1)
Quarter: 2020Q2

REPORT INFORMATION
  Report Type: Spontaneous
  Country: FR (occurrence: FR)
  Receive Date: 20200515
  Receipt Date: 20200515
  Transmission Date: 20200714
  Serious: Yes (Death)
  Sender: FDA-Public Use
  Company Number: FR-TEVA-2020-FR-1234435

PATIENT
  Age: 78 Year
  Sex: Male

DRUGS (3)
  1. ALIMTA [Suspect]
     Active Substance: PEMETREXED DISODIUM
     Indication: LUNG ADENOCARCINOMA
     Route: 041
     Dates: start: 201911
  2. CARBOPLATINE [Suspect]
     Active Substance: CARBOPLATIN
     Indication: LUNG ADENOCARCINOMA
     Route: 041
     Dates: start: 201911
  3. KEYTRUDA [Suspect]
     Active Substance: PEMBROLIZUMAB
     Indication: LUNG ADENOCARCINOMA
     Route: 041
     Dates: start: 201911

REACTIONS (8)
  - Dyspnoea [Fatal]
  - Hepatocellular injury [Fatal]
  - Myositis [Fatal]
  - Eyelid ptosis [Fatal]
  - Blood creatine phosphokinase increased [Fatal]
  - Muscular weakness [Fatal]
  - Troponin increased [Fatal]
  - Dysphagia [Fatal]

NARRATIVE: CASE EVENT DATE: 20200205
